FAERS Safety Report 23656360 (Version 1)
Quarter: 2024Q1

REPORT INFORMATION
  Report Type: Spontaneous
  Country: CA (occurrence: CA)
  Receive Date: 20240321
  Receipt Date: 20240321
  Transmission Date: 20240410
  Serious: Yes (Other)
  Sender: FDA-Public Use
  Company Number: CA-APOTEX-2024AP003689

PATIENT

DRUGS (3)
  1. GEMCITABINE [Suspect]
     Active Substance: GEMCITABINE
     Indication: Bladder cancer
     Dosage: 1 GRAM IN 50 ML NORMAL SALINE FOR ABOUT 90 MINUTES
     Route: 043
  2. DOCETAXEL [Suspect]
     Active Substance: DOCETAXEL\DOCETAXEL ANHYDROUS
     Indication: Bladder cancer
     Dosage: 37.5 MILLIGRAM IN 50 ML NORMAL SALINE, FOR 120 MINUTES
     Route: 043
  3. SODIUM BICARBONATE [Concomitant]
     Active Substance: SODIUM BICARBONATE
     Indication: Urine alkalinisation therapy
     Dosage: 1500 MILLIGRAM, IN THE EVENING PRIOR AND THE MORNING OF TREATMENT
     Route: 048

REACTIONS (1)
  - Urinary retention [Unknown]
